FAERS Safety Report 19809902 (Version 1)
Quarter: 2021Q3

REPORT INFORMATION
  Report Type: Spontaneous
  Country: US (occurrence: US)
  Receive Date: 20210908
  Receipt Date: 20210908
  Transmission Date: 20211014
  Serious: No
  Sender: FDA-Public Use
  Company Number: US-ROCHE-2808016

PATIENT
  Sex: Female

DRUGS (1)
  1. PHESGO [Suspect]
     Active Substance: HYALURONIDASE-ZZXF\PERTUZUMAB\TRASTUZUMAB
     Indication: BREAST CANCER METASTATIC
     Route: 058
     Dates: start: 20210203

REACTIONS (1)
  - Liver function test abnormal [Unknown]

NARRATIVE: CASE EVENT DATE: 20210406
